FAERS Safety Report 20538432 (Version 1)
Quarter: 2022Q1

REPORT INFORMATION
  Report Type: Spontaneous
  Country: DE (occurrence: DE)
  Receive Date: 20220302
  Receipt Date: 20220302
  Transmission Date: 20220423
  Serious: Yes (Hospitalization, Other)
  Sender: FDA-Public Use
  Company Number: None

PATIENT
  Age: 87 Year
  Sex: Female

DRUGS (6)
  1. RIVAROXABAN [Suspect]
     Active Substance: RIVAROXABAN
     Indication: Product used for unknown indication
     Dosage: 15 MG, QD
     Route: 048
  2. ATORVASTATIN [Concomitant]
     Active Substance: ATORVASTATIN
     Dosage: 10 MG, QD
     Route: 048
  3. PREGABALIN [Concomitant]
     Active Substance: PREGABALIN
     Dosage: 25 MG, QD
     Route: 048
  4. METOPROLOL [Concomitant]
     Active Substance: METOPROLOL
     Dosage: 47.5 MG, BID, 1-0-1-0
     Route: 048
  5. DIGITOXIN [Concomitant]
     Active Substance: DIGITOXIN
     Dosage: 0.1 MG, 0.5-0-0-0, TABLETS
     Route: 048
  6. TORSEMIDE [Concomitant]
     Active Substance: TORSEMIDE
     Dosage: 5 MG, 1-0.5-0-0, TABLETS
     Route: 048

REACTIONS (5)
  - Pallor [Unknown]
  - Dyspnoea exertional [Unknown]
  - Melaena [Unknown]
  - Fatigue [Unknown]
  - Blood loss anaemia [Unknown]
